FAERS Safety Report 8909221 (Version 1)
Quarter: 2012Q4

REPORT INFORMATION
  Report Type: Spontaneous
  Country: US (occurrence: None)
  Receive Date: 20121113
  Receipt Date: 20121113
  Transmission Date: 20130627
  Serious: Yes (Other)
  Sender: FDA-Public Use
  Company Number: None

PATIENT
  Age: 54 Year
  Sex: Female

DRUGS (1)
  1. NEUTROGENA SKINID CLEANSER [Suspect]
     Indication: THERAPEUTIC SKIN CARE TOPICAL
     Route: 061
     Dates: start: 20121017

REACTIONS (6)
  - Application site erythema [None]
  - Eye swelling [None]
  - Application site swelling [None]
  - Throat tightness [None]
  - Dysphagia [None]
  - Dizziness [None]
